FAERS Safety Report 16893194 (Version 1)
Quarter: 2019Q4

REPORT INFORMATION
  Report Type: Spontaneous
  Country: IT (occurrence: IT)
  Receive Date: 20191008
  Receipt Date: 20191008
  Transmission Date: 20200122
  Serious: Yes (Hospitalization)
  Sender: FDA-Public Use
  Company Number: IT-TEVA-2019-IT-1117557

PATIENT
  Age: 88 Year
  Sex: Female

DRUGS (4)
  1. DINTOINA [Concomitant]
     Active Substance: PHENYTOIN SODIUM
     Route: 048
  2. CLOPIDOGREL [Suspect]
     Active Substance: CLOPIDOGREL BISULFATE
     Indication: CARDIOVASCULAR EVENT PROPHYLAXIS
     Route: 048
     Dates: start: 20190101, end: 20190513
  3. VALSARTAN. [Concomitant]
     Active Substance: VALSARTAN
     Route: 048
  4. ESCITALOPRAM [Concomitant]
     Active Substance: ESCITALOPRAM OXALATE
     Route: 048

REACTIONS (3)
  - Anaemia [Unknown]
  - Haematochezia [Unknown]
  - Syncope [Unknown]

NARRATIVE: CASE EVENT DATE: 20190513
